FAERS Safety Report 6955907-8 (Version None)
Quarter: 2010Q3

REPORT INFORMATION
  Report Type: 
  Country: None (occurrence: None)
  Receive Date: 20100830
  Receipt Date: 20100824
  Transmission Date: 20110219
  Serious: Yes (Life-Threatening)
  Sender: FDA-Public Use
  Company Number: US-ROCHE-723464

PATIENT
  Sex: Male
  Weight: 70.3 kg

DRUGS (23)
  1. TOCILIZUMAB [Suspect]
     Indication: RHEUMATOID ARTHRITIS
     Route: 042
     Dates: start: 20060927
  2. TOCILIZUMAB [Suspect]
     Route: 042
     Dates: start: 20081219
  3. TOCILIZUMAB [Suspect]
     Route: 042
     Dates: start: 20090115
  4. TOCILIZUMAB [Suspect]
     Route: 042
     Dates: start: 20090213
  5. TOCILIZUMAB [Suspect]
     Route: 042
     Dates: start: 20090311
  6. TOCILIZUMAB [Suspect]
     Route: 042
     Dates: start: 20090409
  7. TOCILIZUMAB [Suspect]
     Route: 042
     Dates: start: 20090528
  8. TOCILIZUMAB [Suspect]
     Dosage: PERMENENTLY DISCONTINUED. DATE OF LAST DOSE PRIOR TO SAE: 03 AUGUST 2010, DOSAGE FORM: IV SOLUTION
     Route: 042
     Dates: end: 20100823
  9. PLACEBO [Suspect]
     Indication: RHEUMATOID ARTHRITIS
     Dosage: PREVIOUSLY ENROLLED IN WA18063 AND RECEIVED INTRAVENOUS PLACEBO.
     Route: 042
  10. PREDNISONE [Concomitant]
     Dosage: FREQ: PRN
     Route: 048
     Dates: start: 20090207
  11. PREDNISONE [Concomitant]
     Route: 048
     Dates: start: 20090328, end: 20090428
  12. PREDNISONE [Concomitant]
     Route: 048
     Dates: start: 20090913
  13. SALSALATE [Concomitant]
     Dates: start: 19980101, end: 20090409
  14. ANTIOXIDANT [Concomitant]
     Dates: start: 20000101
  15. CALCIUM/VITAMIN D [Concomitant]
     Dates: start: 20050702
  16. TYLENOL-500 [Concomitant]
     Dates: start: 20070926
  17. METHOTREXATE [Concomitant]
     Route: 030
     Dates: start: 20081111, end: 20090409
  18. METHOTREXATE [Concomitant]
     Route: 030
     Dates: start: 20100120
  19. MULTIPLE VITS [Concomitant]
     Dosage: FREQ: QD
     Dates: start: 20070101
  20. RANITIDINE [Concomitant]
     Dates: start: 20070502
  21. LUTEIN [Concomitant]
     Dates: start: 20070317
  22. FOLIC ACID [Concomitant]
     Dates: start: 20070316
  23. NAPROXEN [Concomitant]
     Dosage: DOSE: 500 MG BID/QD
     Dates: start: 20100302

REACTIONS (1)
  - PROSTATE CANCER [None]
